FAERS Safety Report 8178821-1 (Version None)
Quarter: 2012Q1

REPORT INFORMATION
  Report Type: 
  Country: None (occurrence: None)
  Receive Date: 20120301
  Receipt Date: 20120217
  Transmission Date: 20120608
  Serious: Yes (Congenital Anomaly)
  Sender: FDA-Public Use
  Company Number: US-MYLANLABS-2012S1003884

PATIENT

DRUGS (2)
  1. LAMOTRIGINE [Suspect]
     Dosage: 300MG AT LAST MENSTRUAL PERIOD
     Route: 064
  2. VALPROIC ACID [Suspect]
     Dosage: 750MG AT LAST MENSTRUAL PERIOD
     Route: 064

REACTIONS (3)
  - KIDNEY MALFORMATION [None]
  - CRYPTORCHISM [None]
  - MATERNAL EXPOSURE DURING PREGNANCY [None]
